FAERS Safety Report 11820782 (Version 1)
Quarter: 2015Q4

REPORT INFORMATION
  Report Type: Spontaneous
  Country: US (occurrence: US)
  Receive Date: 20151210
  Receipt Date: 20151210
  Transmission Date: 20160305
  Serious: No
  Sender: FDA-Public Use
  Company Number: US-JNJFOC-20150404254

PATIENT
  Sex: Male
  Weight: 107 kg

DRUGS (15)
  1. POTASSIUM CHLORIDE. [Concomitant]
     Active Substance: POTASSIUM CHLORIDE
  2. IMBRUVICA [Suspect]
     Active Substance: IBRUTINIB
     Indication: CHRONIC LYMPHOCYTIC LEUKAEMIA
     Route: 048
     Dates: start: 20140410
  3. VITAMIN D3 [Concomitant]
     Active Substance: CHOLECALCIFEROL
  4. VITAMIN B12 [Concomitant]
     Active Substance: CYANOCOBALAMIN
  5. FUROSEMIDE. [Concomitant]
     Active Substance: FUROSEMIDE
  6. ALLOPURINOL. [Concomitant]
     Active Substance: ALLOPURINOL
  7. VITAMIN D [Concomitant]
     Active Substance: CHOLECALCIFEROL
  8. IMBRUVICA [Suspect]
     Active Substance: IBRUTINIB
     Indication: CHRONIC LYMPHOCYTIC LEUKAEMIA
     Route: 048
  9. LISINOPRIL. [Concomitant]
     Active Substance: LISINOPRIL
  10. IRON [Concomitant]
     Active Substance: IRON
  11. SIMVASTATIN. [Concomitant]
     Active Substance: SIMVASTATIN
  12. TAMSULOSIN [Concomitant]
     Active Substance: TAMSULOSIN
  13. COUMADIN [Concomitant]
     Active Substance: WARFARIN SODIUM
  14. IMBRUVICA [Suspect]
     Active Substance: IBRUTINIB
     Indication: CHRONIC LYMPHOCYTIC LEUKAEMIA
     Route: 048
  15. TRAMADOL. [Concomitant]
     Active Substance: TRAMADOL

REACTIONS (3)
  - International normalised ratio increased [Not Recovered/Not Resolved]
  - Dizziness [Not Recovered/Not Resolved]
  - Dyspnoea [Not Recovered/Not Resolved]
